FAERS Safety Report 7211360-0 (Version None)
Quarter: 2011Q1

REPORT INFORMATION
  Report Type: 
  Country: None (occurrence: None)
  Receive Date: 20110105
  Receipt Date: 20110105
  Transmission Date: 20110831
  Serious: Yes (Other)
  Sender: FDA-Public Use
  Company Number: AU-JNJFOC-20101207582

PATIENT
  Sex: Female
  Weight: 61 kg

DRUGS (5)
  1. TOPAMAX [Suspect]
     Route: 048
  2. CABASER [Concomitant]
     Indication: RESTLESS LEGS SYNDROME
     Route: 048
  3. SUMATRIPTAN SUCCINATE [Concomitant]
     Indication: MIGRAINE PROPHYLAXIS
     Route: 048
  4. CALCIUM [Concomitant]
     Indication: OSTEOPOROSIS
     Route: 065
  5. TOPAMAX [Suspect]
     Indication: MIGRAINE PROPHYLAXIS
     Route: 048

REACTIONS (1)
  - BONE DENSITY DECREASED [None]
